FAERS Safety Report 5785742-8 (Version None)
Quarter: 2008Q2

REPORT INFORMATION
  Report Type: 
  Country: None (occurrence: None)
  Receive Date: 20080624
  Receipt Date: 20070613
  Transmission Date: 20081010
  Serious: No
  Sender: FDA-Public Use
  Company Number: US-ASTRAZENECA-2007UW14160

PATIENT
  Age: 63 Year
  Sex: Female
  Weight: 77.6 kg

DRUGS (6)
  1. PULMICORT RESPULES [Suspect]
     Indication: SARCOIDOSIS
     Route: 055
     Dates: start: 20070605
  2. PULMICORT RESPULES [Suspect]
     Indication: CHRONIC OBSTRUCTIVE PULMONARY DISEASE
     Route: 055
     Dates: start: 20070605
  3. PREDNISONE TAB [Concomitant]
     Indication: SARCOIDOSIS
  4. PREDNISONE TAB [Concomitant]
  5. ALBUTEROL [Concomitant]
  6. FORADIL [Concomitant]

REACTIONS (7)
  - ABDOMINAL DISTENSION [None]
  - ABDOMINAL PAIN [None]
  - CHEST PAIN [None]
  - COUGH [None]
  - DIARRHOEA [None]
  - ERUCTATION [None]
  - MONOPARESIS [None]
